FAERS Safety Report 9035668 (Version 1)
Quarter: 2013Q1

REPORT INFORMATION
  Report Type: Spontaneous
  Country: US (occurrence: US)
  Receive Date: 20130129
  Receipt Date: 20130129
  Transmission Date: 20140127
  Serious: No
  Sender: FDA-Public Use
  Company Number: US-ABBOTT-12P-163-0913445-00

PATIENT
  Age: 68 Year
  Sex: Female
  Weight: 102.15 kg

DRUGS (1)
  1. HUMIRA 40 MG/0.8 ML PEN [Suspect]
     Indication: PSORIASIS
     Route: 058
     Dates: start: 20120111

REACTIONS (2)
  - Incorrect drug dosage form administered [Recovered/Resolved]
  - Wrong technique in drug usage process [Recovered/Resolved]
